FAERS Safety Report 6380141-2 (Version None)
Quarter: 2009Q3

REPORT INFORMATION
  Report Type: 
  Country: None (occurrence: None)
  Receive Date: 20090929
  Receipt Date: 20070807
  Transmission Date: 20100115
  Serious: Yes (Hospitalization, Other)
  Sender: FDA-Public Use
  Company Number: US-ASTRAZENECA-2007UW02146

PATIENT
  Age: 14628 Day
  Sex: Female
  Weight: 97.5 kg

DRUGS (7)
  1. SEROQUEL [Suspect]
     Indication: BIPOLAR DISORDER
     Dosage: 25 MG-300 MG
     Route: 048
     Dates: start: 20060215
  2. SEROQUEL [Suspect]
     Route: 048
     Dates: start: 20060201, end: 20061101
  3. DEPAKOTE [Concomitant]
     Dates: start: 20060901
  4. WELLBUTRIN XL [Concomitant]
     Dates: start: 20060913
  5. SYNTHROID [Concomitant]
     Dates: start: 20060623
  6. PRILOSEC [Concomitant]
     Dates: start: 20060623
  7. TRAZODONE [Concomitant]
     Dates: start: 20060727

REACTIONS (17)
  - ALCOHOLIC PANCREATITIS [None]
  - ARTHRALGIA [None]
  - AURICULAR SWELLING [None]
  - BRONCHIAL IRRITATION [None]
  - CHILLS [None]
  - CHRONIC HEPATITIS [None]
  - HEPATITIS C [None]
  - HYPOTHYROIDISM [None]
  - LIVER FUNCTION TEST ABNORMAL [None]
  - MUSCULAR WEAKNESS [None]
  - MYALGIA [None]
  - PANCREATITIS [None]
  - PANCREATITIS ACUTE [None]
  - RASH [None]
  - SALIVARY GLAND CYST [None]
  - TYPE 2 DIABETES MELLITUS [None]
  - URTICARIA [None]
